FAERS Safety Report 9228173 (Version 2)
Quarter: 2013Q2

REPORT INFORMATION
  Report Type: Report from Study
  Country: FR (occurrence: FR)
  Receive Date: 20130412
  Receipt Date: 20130521
  Transmission Date: 20140414
  Serious: Yes (Other)
  Sender: FDA-Public Use
  Company Number: FR-ROCHE-1210951

PATIENT
  Sex: 0

DRUGS (3)
  1. ALTEPLASE [Suspect]
     Indication: PULMONARY EMBOLISM
     Dosage: OVER 2 HOURS
     Route: 065
  2. STREPTOKINASE [Suspect]
     Indication: PULMONARY EMBOLISM
     Dosage: 1.5 MILLION IU OVER 2 HOURS
     Route: 065
  3. UNFRACTIONATED HEPARIN [Suspect]
     Indication: PULMONARY EMBOLISM
     Dosage: 1000 IU/H ADAPTED TO ACHIEVE AN APTT OF 2 TO 3 TIMES OF NORMAL VALUE
     Route: 042

REACTIONS (1)
  - Cardiac failure congestive [Unknown]
